FAERS Safety Report 8856888 (Version 1)
Quarter: 2012Q4

REPORT INFORMATION
  Report Type: Spontaneous
  Country: US (occurrence: None)
  Receive Date: 20121023
  Receipt Date: 20121023
  Transmission Date: 20130627
  Serious: No
  Sender: FDA-Public Use
  Company Number: None

PATIENT
  Age: 69 Year
  Sex: Female
  Weight: 45.36 kg

DRUGS (4)
  1. ASPIRIN [Suspect]
     Dosage: 1 tablet once a day
     Dates: start: 20120816, end: 20120921
  2. ASPIRIN [Suspect]
     Dosage: 1 tablet once a day
     Dates: start: 20120730, end: 20120816
  3. DILTIAZEM [Concomitant]
  4. DIGOXIN [Concomitant]

REACTIONS (2)
  - Eye disorder [None]
  - Eye haemorrhage [None]
